FAERS Safety Report 23181781 (Version 1)
Quarter: 2023Q4

REPORT INFORMATION
  Report Type: Spontaneous
  Country: US (occurrence: None)
  Receive Date: 20231113
  Receipt Date: 20231113
  Transmission Date: 20240110
  Serious: Yes (Death)
  Sender: FDA-Public Use
  Company Number: None

PATIENT
  Age: 72 Year
  Sex: Male
  Weight: 142 kg

DRUGS (1)
  1. YESCARTA [Suspect]
     Active Substance: AXICABTAGENE CILOLEUCEL
     Indication: Diffuse large B-cell lymphoma
     Dates: start: 20231101, end: 20231101

REACTIONS (5)
  - Neurotoxicity [None]
  - Cytokine release syndrome [None]
  - Acute kidney injury [None]
  - Sepsis [None]
  - Cardiac arrest [None]

NARRATIVE: CASE EVENT DATE: 20231109
